FAERS Safety Report 4347790-4 (Version None)
Quarter: 2004Q2

REPORT INFORMATION
  Report Type: 
  Country: None (occurrence: None)
  Receive Date: 20040422
  Receipt Date: 20040409
  Transmission Date: 20050107
  Serious: Yes (Hospitalization)
  Sender: FDA-Public Use
  Company Number: 205819

PATIENT
  Sex: Female

DRUGS (1)
  1. RAPTIVA [Suspect]
     Indication: PSORIASIS
     Dosage: 125 MG, 1/WEEK, SUBCUTANEOUS
     Route: 058
     Dates: start: 20040101

REACTIONS (3)
  - DIFFICULTY IN WALKING [None]
  - OEDEMA PERIPHERAL [None]
  - PAIN IN EXTREMITY [None]
